FAERS Safety Report 16682401 (Version 1)
Quarter: 2019Q3

REPORT INFORMATION
  Report Type: Spontaneous
  Country: US (occurrence: US)
  Receive Date: 20190808
  Receipt Date: 20190808
  Transmission Date: 20191004
  Serious: No
  Sender: FDA-Public Use
  Company Number: US-009507513-1908USA000745

PATIENT
  Sex: Female

DRUGS (3)
  1. TRUSOPT [Suspect]
     Active Substance: DORZOLAMIDE HYDROCHLORIDE
     Dosage: 1 DROP EACH EYE THREE TIMES A DAY
     Route: 047
     Dates: start: 201907
  2. TRUSOPT [Suspect]
     Active Substance: DORZOLAMIDE HYDROCHLORIDE
     Indication: GLAUCOMA
     Dosage: UNK
     Dates: start: 2006
  3. TRUSOPT [Suspect]
     Active Substance: DORZOLAMIDE HYDROCHLORIDE
     Dosage: 1 DROP EACH EYE THREE TIMES A DAY
     Route: 047
     Dates: start: 201907, end: 201907

REACTIONS (3)
  - Ocular discomfort [Unknown]
  - Product deposit [Unknown]
  - Poor quality product administered [Unknown]
